FAERS Safety Report 17279343 (Version 1)
Quarter: 2020Q1

REPORT INFORMATION
  Report Type: Spontaneous
  Country: IT (occurrence: IT)
  Receive Date: 20200116
  Receipt Date: 20200116
  Transmission Date: 20200409
  Serious: Yes (Hospitalization)
  Sender: FDA-Public Use
  Company Number: IT-TAKEDA-2020TUS001915

PATIENT
  Age: 17 Year
  Sex: Male
  Weight: 66 kg

DRUGS (1)
  1. VELCADE [Suspect]
     Active Substance: BORTEZOMIB
     Indication: ACUTE LYMPHOCYTIC LEUKAEMIA
     Dosage: 4.6 MILLIGRAM
     Route: 042
     Dates: start: 20190907, end: 20190910

REACTIONS (5)
  - Platelet count decreased [Recovered/Resolved]
  - Weight increased [Recovered/Resolved]
  - Off label use [Unknown]
  - Blood bilirubin increased [Recovered/Resolved]
  - Product use in unapproved indication [Unknown]

NARRATIVE: CASE EVENT DATE: 20190907
